FAERS Safety Report 8432700-0 (Version None)
Quarter: 2012Q2

REPORT INFORMATION
  Report Type: 
  Country: None (occurrence: None)
  Receive Date: 20120323
  Receipt Date: 20111017
  Transmission Date: 20120825
  Serious: Yes (Hospitalization)
  Sender: FDA-Public Use
  Company Number: 163-21880-11060518

PATIENT
  Age: 57 Year
  Sex: Female

DRUGS (3)
  1. REVLIMID [Suspect]
  2. REVLIMID [Suspect]
     Indication: MULTIPLE MYELOMA
     Dosage: 10;15 MG, 1 IN 1 D, PO
     Route: 048
     Dates: start: 20101213, end: 20110101
  3. CHEMOTHERAPY (CHEMOTHERAPY) [Concomitant]

REACTIONS (2)
  - PNEUMONIA [None]
  - DRUG INEFFECTIVE [None]
